FAERS Safety Report 20090627 (Version 1)
Quarter: 2021Q4

REPORT INFORMATION
  Report Type: Spontaneous
  Country: JP (occurrence: JP)
  Receive Date: 20211119
  Receipt Date: 20211119
  Transmission Date: 20220304
  Serious: Yes (Hospitalization, Other)
  Sender: FDA-Public Use
  Company Number: JP-002147023-NVSJ2021JP018515

PATIENT

DRUGS (1)
  1. RUXOLITINIB [Suspect]
     Active Substance: RUXOLITINIB
     Indication: Graft versus host disease
     Dosage: 10MG-20 MG
     Route: 048

REACTIONS (3)
  - Cytomegalovirus infection [Recovered/Resolved]
  - Human herpesvirus 6 infection [Recovered/Resolved with Sequelae]
  - Product use in unapproved indication [Unknown]
